FAERS Safety Report 4690085-X (Version None)
Quarter: 2005Q2

REPORT INFORMATION
  Report Type: 
  Country: None (occurrence: None)
  Receive Date: 20050614
  Receipt Date: 20050526
  Transmission Date: 20051028
  Serious: Yes (Death)
  Sender: FDA-Public Use
  Company Number: BRO-008713

PATIENT
  Age: 50 Year
  Sex: Female

DRUGS (2)
  1. IOPAMIDOL-300 [Suspect]
     Indication: COMPUTERISED TOMOGRAM
     Dosage: 100 ML, IV
     Route: 042
     Dates: start: 20050425, end: 20050425
  2. PREDNISONE TAB [Concomitant]

REACTIONS (1)
  - ASTHMA [None]
